FAERS Safety Report 8583477-X (Version None)
Quarter: 2012Q3

REPORT INFORMATION
  Report Type: 
  Country: None (occurrence: None)
  Receive Date: 20120809
  Receipt Date: 20120806
  Transmission Date: 20120928
  Serious: Yes (Other)
  Sender: FDA-Public Use
  Company Number: PHHY2012JP068637

PATIENT
  Age: 55 Year
  Sex: Male

DRUGS (3)
  1. MYCOPHENOLATE MOFETIL [Concomitant]
     Indication: LIVER TRANSPLANT
  2. CYCLOSPORINE [Suspect]
     Indication: LIVER TRANSPLANT
  3. METHYLPREDNISOLONE [Concomitant]
     Indication: LIVER TRANSPLANT

REACTIONS (3)
  - HEPATIC ARTERY EMBOLISM [None]
  - EMBOLISM VENOUS [None]
  - ACUTE MYOCARDIAL INFARCTION [None]
